FAERS Safety Report 9515725 (Version 1)
Quarter: 2013Q3

REPORT INFORMATION
  Report Type: Spontaneous
  Country: US (occurrence: US)
  Receive Date: 20130911
  Receipt Date: 20130911
  Transmission Date: 20140515
  Serious: Yes (Hospitalization)
  Sender: FDA-Public Use
  Company Number: US-PFIZER INC-2013257236

PATIENT
  Age: 65 Year
  Sex: Female

DRUGS (3)
  1. XELJANZ [Suspect]
     Indication: RHEUMATOID ARTHRITIS
     Dosage: 5 MG, 2X/DAY
     Dates: start: 201308, end: 201308
  2. METHOTREXATE [Concomitant]
     Indication: RHEUMATOID ARTHRITIS
     Dosage: 20 MG, WEEKLY
  3. MEDROL [Concomitant]
     Dosage: 8 MG, 1X/DAY

REACTIONS (2)
  - Chest pain [Recovered/Resolved]
  - Heart rate increased [Recovered/Resolved]
